FAERS Safety Report 6018985-9 (Version None)
Quarter: 2008Q4

REPORT INFORMATION
  Report Type: 
  Country: None (occurrence: None)
  Receive Date: 20081224
  Receipt Date: 20081215
  Transmission Date: 20090506
  Serious: Yes (Death)
  Sender: FDA-Public Use
  Company Number: US-PFIZER INC-2008153710

PATIENT
  Age: 53 Year
  Sex: Female

DRUGS (7)
  1. PIROXICAM [Suspect]
     Route: 048
  2. ESCITALOPRAM [Suspect]
     Route: 048
  3. CYCLOBENZAPRINE [Suspect]
     Route: 048
  4. ACETAMINOPHEN [Suspect]
     Route: 048
  5. BUPROPION [Suspect]
     Route: 048
  6. ETHANOL [Suspect]
     Route: 048
  7. NIFEDIPINE [Suspect]
     Route: 048

REACTIONS (3)
  - CARDIAC ARREST [None]
  - COMPLETED SUICIDE [None]
  - RESPIRATORY ARREST [None]
